FAERS Safety Report 8302295-0 (Version None)
Quarter: 2012Q2

REPORT INFORMATION
  Report Type: 
  Country: None (occurrence: None)
  Receive Date: 20120420
  Receipt Date: 20120412
  Transmission Date: 20120825
  Serious: Yes (Hospitalization)
  Sender: FDA-Public Use
  Company Number: US-EISAI INC-E7867-00250-CLI-US

PATIENT
  Sex: Male
  Weight: 61 kg

DRUGS (21)
  1. ALLOPURINOL [Concomitant]
     Route: 048
  2. FOLIC ACID [Concomitant]
     Route: 048
  3. KEPPRA [Concomitant]
     Route: 048
  4. PERCOCET [Concomitant]
  5. BACTRIM [Concomitant]
  6. ATIVAN [Concomitant]
     Route: 048
  7. DECADRON [Concomitant]
  8. ATENOLOL [Concomitant]
     Route: 048
  9. BACITRACINE [Concomitant]
  10. MORPHINE [Concomitant]
  11. BEVACIZUMAB [Concomitant]
     Dosage: UNKNOWN
     Route: 041
  12. GLIADEL [Suspect]
     Indication: GLIOBLASTOMA
     Route: 018
     Dates: start: 20111230
  13. CELEXA [Concomitant]
     Route: 048
  14. KEPPRA [Concomitant]
     Route: 048
     Dates: start: 20120213
  15. PRAVASTATIN [Concomitant]
     Route: 048
  16. ENOXAPARIN [Concomitant]
     Route: 058
  17. SENNA [Concomitant]
     Route: 048
  18. MAGNESIUM [Concomitant]
  19. ZOFRAN [Concomitant]
  20. TEMODAR [Suspect]
     Route: 041
     Dates: start: 20120207, end: 20120301
  21. SIMVASTATIN [Concomitant]
     Route: 048

REACTIONS (5)
  - ENTEROCOLITIS [None]
  - DEHYDRATION [None]
  - COGNITIVE DISORDER [None]
  - FATIGUE [None]
  - ATAXIA [None]
